FAERS Safety Report 10610817 (Version 1)
Quarter: 2014Q4

REPORT INFORMATION
  Report Type: Spontaneous
  Country: US (occurrence: US)
  Receive Date: 20141126
  Receipt Date: 20141126
  Transmission Date: 20150529
  Serious: No
  Sender: FDA-Public Use
  Company Number: US-GLAXOSMITHKLINE-A1077091A

PATIENT

DRUGS (16)
  1. AMLODIPINE [Concomitant]
     Active Substance: AMLODIPINE BESYLATE
  2. OMEPRAZOLE. [Concomitant]
     Active Substance: OMEPRAZOLE
  3. CALTRATE [Concomitant]
     Active Substance: CALCIUM CARBONATE
  4. FLOVENT [Suspect]
     Active Substance: FLUTICASONE PROPIONATE
     Indication: ASTHMA
     Dosage: ROTA 250MCG
     Route: 055
     Dates: start: 2012
  5. CALCITONIN SALMON SPRAY (EXCEPT INHALATION) [Concomitant]
  6. UNKNOWN EYE MEDICATION [Concomitant]
  7. KEPPRA [Concomitant]
     Active Substance: LEVETIRACETAM
  8. DEPAKOTE [Concomitant]
     Active Substance: DIVALPROEX SODIUM
  9. ISOSORBIDE [Concomitant]
     Active Substance: ISOSORBIDE
  10. L-THYROXINE [Concomitant]
     Active Substance: LEVOTHYROXINE
  11. LOSARTAN [Concomitant]
     Active Substance: LOSARTAN
  12. FLUTICASONE NASAL SPRAY [Concomitant]
     Active Substance: FLUTICASONE\FLUTICASONE PROPIONATE
  13. HYOSCYAMINE [Concomitant]
     Active Substance: HYOSCYAMINE
  14. ASPIRIN. [Concomitant]
     Active Substance: ASPIRIN
  15. VITAMINS [Concomitant]
     Active Substance: VITAMINS
  16. METOPROLOL [Concomitant]
     Active Substance: METOPROLOL

REACTIONS (5)
  - Ill-defined disorder [Unknown]
  - Activities of daily living impaired [Unknown]
  - Dyspnoea [Unknown]
  - Drug ineffective [Unknown]
  - Hypertension [Not Recovered/Not Resolved]

NARRATIVE: CASE EVENT DATE: 201405
